FAERS Safety Report 25557277 (Version 3)
Quarter: 2025Q4

REPORT INFORMATION
  Report Type: Spontaneous
  Country: US (occurrence: US)
  Receive Date: 20250715
  Receipt Date: 20251023
  Transmission Date: 20260118
  Serious: Yes (Hospitalization, Other)
  Sender: BRISTOL-MYERS SQUIBB COMPANY
  Company Number: US-BRISTOL-MYERS SQUIBB COMPANY-2025-099369

PATIENT
  Age: 68 Year
  Sex: Female

DRUGS (2)
  1. ORENCIA [Suspect]
     Active Substance: ABATACEPT
     Indication: Rheumatoid arthritis
     Dosage: EVERY 7 DAYS
     Dates: start: 202503
  2. ORENCIA [Suspect]
     Active Substance: ABATACEPT
     Dosage: EVERY 7 DAYS

REACTIONS (4)
  - Oxygen saturation abnormal [Unknown]
  - Pain [Unknown]
  - Rheumatoid arthritis [Recovered/Resolved]
  - Oral disorder [Unknown]

NARRATIVE: CASE EVENT DATE: 20231001
